FAERS Safety Report 9297545 (Version 1)
Quarter: 2013Q2

REPORT INFORMATION
  Report Type: Spontaneous
  Country: US (occurrence: US)
  Receive Date: 20130520
  Receipt Date: 20130520
  Transmission Date: 20140414
  Serious: No
  Sender: FDA-Public Use
  Company Number: US-009507513-1305USA009644

PATIENT
  Sex: Male

DRUGS (2)
  1. NASONEX [Suspect]
     Dosage: UNK, BID
     Route: 045
  2. NASONEX [Suspect]
     Dosage: UNK, ONE SPRAY A DAY
     Route: 045

REACTIONS (2)
  - Hypersensitivity [Unknown]
  - Ear pain [Unknown]
